FAERS Safety Report 6465990-4 (Version None)
Quarter: 2009Q4

REPORT INFORMATION
  Report Type: 
  Country: None (occurrence: None)
  Receive Date: 20091202
  Receipt Date: 20091125
  Transmission Date: 20100525
  Serious: Yes (Other)
  Sender: FDA-Public Use
  Company Number: TR-RANBAXY-2009RR-29461

PATIENT
  Age: 16 Year
  Sex: Male

DRUGS (6)
  1. OXCARBAZEPINE [Suspect]
     Indication: EPILEPSY
  2. WARFARIN SODIUM [Suspect]
     Dosage: 10 MG, UNK
  3. WARFARIN SODIUM [Suspect]
     Dosage: 15 MG, UNK
  4. WARFARIN SODIUM [Suspect]
     Dosage: 20 MG, UNK
  5. ASPIRIN [Concomitant]
  6. CLOPIDOGREL [Concomitant]

REACTIONS (2)
  - DRUG INTERACTION [None]
  - DRUG RESISTANCE [None]
